FAERS Safety Report 24622743 (Version 1)
Quarter: 2024Q4

REPORT INFORMATION
  Report Type: Report from Study
  Country: GB (occurrence: GB)
  Receive Date: 20241115
  Receipt Date: 20241115
  Transmission Date: 20250115
  Serious: Yes (Hospitalization, Other)
  Sender: SANDOZ
  Company Number: GB-SANDOZ-SDZ2023GB051898

PATIENT
  Sex: Male

DRUGS (1)
  1. OMNITROPE [Suspect]
     Active Substance: SOMATROPIN
     Indication: Hypopituitarism
     Dosage: 0.05 MG, QD
     Route: 058

REACTIONS (6)
  - Craniofacial fracture [Unknown]
  - Hospitalisation [Unknown]
  - Epistaxis [Unknown]
  - Influenza [Unknown]
  - Fall [Unknown]
  - Contusion [Unknown]
